FAERS Safety Report 24044197 (Version 1)
Quarter: 2024Q3

REPORT INFORMATION
  Report Type: Report from Study
  Country: US (occurrence: US)
  Receive Date: 20240703
  Receipt Date: 20240703
  Transmission Date: 20241016
  Serious: No
  Sender: BIOVITRUM
  Company Number: US-BIOVITRUM-2024-US-009367

PATIENT
  Age: 30 Year
  Sex: Female

DRUGS (1)
  1. KINERET [Suspect]
     Active Substance: ANAKINRA
     Indication: Pyrexia
     Dosage: DAILY
     Route: 058
     Dates: start: 20240612

REACTIONS (2)
  - Injection site reaction [Unknown]
  - Off label use [Not Recovered/Not Resolved]

NARRATIVE: CASE EVENT DATE: 20240612
